FAERS Safety Report 5911240-4 (Version None)
Quarter: 2008Q4

REPORT INFORMATION
  Report Type: 
  Country: None (occurrence: None)
  Receive Date: 20081007
  Receipt Date: 20080930
  Transmission Date: 20090506
  Serious: Yes (Other)
  Sender: FDA-Public Use
  Company Number: US-JNJCH-2008025556

PATIENT
  Age: 33 Year
  Sex: Male
  Weight: 88.5 kg

DRUGS (1)
  1. ROGAINE [Suspect]
     Indication: ALOPECIA
     Dosage: TEXT:1 ML TWICE A DAY
     Route: 061

REACTIONS (4)
  - ALLERGY TO CHEMICALS [None]
  - HEADACHE [None]
  - VISION BLURRED [None]
  - VISUAL ACUITY REDUCED [None]
